FAERS Safety Report 14514097 (Version 1)
Quarter: 2018Q1

REPORT INFORMATION
  Report Type: Spontaneous
  Country: US (occurrence: CA)
  Receive Date: 20180209
  Receipt Date: 20180209
  Transmission Date: 20180509
  Serious: Yes (Hospitalization, Other)
  Sender: FDA-Public Use
  Company Number: US-SUNOVION-2018SUN000454

PATIENT
  Sex: Male

DRUGS (24)
  1. GLYCOPYRROLATE. [Suspect]
     Active Substance: GLYCOPYRROLATE
     Indication: ASTHMA
     Dosage: UNK
     Route: 045
  2. FUROSEMIDE. [Concomitant]
     Active Substance: FUROSEMIDE
  3. LIPIDIL [Concomitant]
     Active Substance: FENOFIBRATE
  4. INSULIN [Concomitant]
     Active Substance: INSULIN NOS
     Route: 048
  5. PMS AZITHROMYCIN [Concomitant]
     Active Substance: AZITHROMYCIN ANHYDROUS
  6. VERAPAMIL [Concomitant]
     Active Substance: VERAPAMIL HYDROCHLORIDE
  7. APO-PREDNISONE [Suspect]
     Active Substance: PREDNISONE
     Indication: PRODUCTIVE COUGH
     Dosage: 50 MG, UNK
     Route: 065
  8. PANTOLOC [Concomitant]
     Active Substance: PANTOPRAZOLE SODIUM
  9. SYMBICORT [Concomitant]
     Active Substance: BUDESONIDE\FORMOTEROL FUMARATE DIHYDRATE
  10. APO-PREDNISONE [Suspect]
     Active Substance: PREDNISONE
     Indication: DYSPNOEA EXERTIONAL
     Dosage: UNK
     Route: 065
  11. XARELTO [Concomitant]
     Active Substance: RIVAROXABAN
  12. CALCIUM [Concomitant]
     Active Substance: CALCIUM
  13. VITAMIN D [Concomitant]
     Active Substance: CHOLECALCIFEROL
  14. METFORMIN [Concomitant]
     Active Substance: METFORMIN HYDROCHLORIDE
  15. IRON [Concomitant]
     Active Substance: IRON
  16. VENTOLIN [Concomitant]
     Active Substance: ALBUTEROL SULFATE
  17. APO-PREDNISONE [Suspect]
     Active Substance: PREDNISONE
     Indication: INFLAMMATION
     Dosage: 30 MG, UNK
     Route: 065
  18. BIAXIN [Concomitant]
     Active Substance: CLARITHROMYCIN
  19. FOSAMAX [Concomitant]
     Active Substance: ALENDRONATE SODIUM
  20. MOMETASONE FUROATE. [Concomitant]
     Active Substance: MOMETASONE FUROATE
  21. RAMIPRIL. [Concomitant]
     Active Substance: RAMIPRIL
  22. ROSUVASTATIN CALCIUM. [Concomitant]
     Active Substance: ROSUVASTATIN CALCIUM
  23. COLACE [Concomitant]
     Active Substance: DOCUSATE SODIUM
  24. SINGULAIR [Concomitant]
     Active Substance: MONTELUKAST SODIUM

REACTIONS (13)
  - Fatigue [Recovered/Resolved]
  - Asthma [Recovered/Resolved]
  - Oedema peripheral [Recovered/Resolved]
  - Lung infiltration [Recovered/Resolved]
  - Inflammation [Recovered/Resolved]
  - Wheezing [Recovered/Resolved]
  - Staphylococcal infection [Recovered/Resolved]
  - Dyspnoea [Recovered/Resolved]
  - Productive cough [Recovered/Resolved]
  - Chest discomfort [Recovered/Resolved]
  - Dyspnoea exertional [Recovered/Resolved]
  - Mucormycosis [Recovered/Resolved]
  - Product use issue [Unknown]
